FAERS Safety Report 7965202-6 (Version None)
Quarter: 2011Q4

REPORT INFORMATION
  Report Type: 
  Country: None (occurrence: None)
  Receive Date: 20111205
  Receipt Date: 20110914
  Transmission Date: 20120403
  Serious: Yes (Other)
  Sender: FDA-Public Use
  Company Number: LEO-2011-01040

PATIENT
  Age: 27 Year
  Sex: Male

DRUGS (2)
  1. TRADITIONAL CHINESE MEDICINE (UNSPECIFIED HERBAL) [Concomitant]
  2. DOVONEX [Suspect]
     Indication: PSORIASIS
     Dosage: (ONCE OR TWICE DAILY),TOPICAL
     Route: 061
     Dates: start: 20110601, end: 20110701

REACTIONS (2)
  - VITILIGO [None]
  - APPLICATION SITE REACTION [None]
